FAERS Safety Report 17528088 (Version 1)
Quarter: 2020Q1

REPORT INFORMATION
  Report Type: Spontaneous
  Country: US (occurrence: US)
  Receive Date: 20200311
  Receipt Date: 20200311
  Transmission Date: 20200409
  Serious: Yes (Other)
  Sender: FDA-Public Use
  Company Number: US-GENERICUS, INC.-2020GNR00005

PATIENT
  Sex: Female

DRUGS (1)
  1. TOBRAMYCIN. [Suspect]
     Active Substance: TOBRAMYCIN
     Indication: CYSTIC FIBROSIS
     Dosage: 300 MG, 2X/DAY EVERY 28 DAYS ON/OFF
     Dates: start: 20190515

REACTIONS (1)
  - Autonomic nervous system imbalance [Not Recovered/Not Resolved]
